FAERS Safety Report 19611119 (Version 1)
Quarter: 2021Q3

REPORT INFORMATION
  Report Type: Spontaneous
  Country: DE (occurrence: DE)
  Receive Date: 20210726
  Receipt Date: 20210726
  Transmission Date: 20211014
  Serious: Yes (Other)
  Sender: FDA-Public Use
  Company Number: DE-PFIZER INC-2021875787

PATIENT
  Age: 42 Year
  Sex: Female
  Weight: 95.9 kg

DRUGS (12)
  1. AMISULPRID [Suspect]
     Active Substance: AMISULPRIDE
     Dosage: 600 MG, 1X/DAY
     Dates: start: 20191201
  2. BRIVIACT [Concomitant]
     Active Substance: BRIVARACETAM
     Dosage: 100 MG, 1X/DAY; GRADUAL WEANING
     Dates: start: 20200609, end: 20200614
  3. FLUANXOL [FLUPENTIXOL DIHYDROCHLORIDE] [Suspect]
     Active Substance: FLUPENTIXOL DIHYDROCHLORIDE
     Dosage: 3.5 MG, 1X/DAY
     Dates: start: 20200406, end: 20200528
  4. BRIVIACT [Concomitant]
     Active Substance: BRIVARACETAM
     Dosage: 150 MG, 1X/DAY
     Dates: start: 20191201, end: 20200608
  5. AKINETON [Concomitant]
     Active Substance: BIPERIDEN HYDROCHLORIDE
     Dates: start: 20191201, end: 20200608
  6. SERTRALINE HCL [Suspect]
     Active Substance: SERTRALINE HYDROCHLORIDE
     Dosage: 150 MG, 1X/DAY
     Dates: start: 20191201, end: 20200617
  7. QUILONUM RETARD [Suspect]
     Active Substance: LITHIUM CARBONATE
     Dosage: 675 MG, 1X/DAY
     Dates: start: 20191201, end: 20200624
  8. FLUANXOL [FLUPENTIXOL DIHYDROCHLORIDE] [Suspect]
     Active Substance: FLUPENTIXOL DIHYDROCHLORIDE
     Dosage: 2 MG, 1X/DAY
     Dates: start: 20200529, end: 20200608
  9. L?THYROXIN [LEVOTHYROXINE SODIUM] [Concomitant]
     Active Substance: LEVOTHYROXINE SODIUM
     Dosage: 75 UG ON MONDAY, TUESDAY, THURSDAY, FRIDAY, SUNDAY
     Dates: start: 20191201
  10. LACOSAMIDE. [Concomitant]
     Active Substance: LACOSAMIDE
     Dates: start: 20191201
  11. L?THYROXIN [LEVOTHYROXINE SODIUM] [Concomitant]
     Active Substance: LEVOTHYROXINE SODIUM
     Dosage: 112.5 UG ON WEDNESDAY AND SATURDAY
     Dates: start: 20191201
  12. LAMOTRIGIN [Concomitant]
     Active Substance: LAMOTRIGINE
     Dates: start: 20200406

REACTIONS (4)
  - Skin abrasion [Recovered/Resolved]
  - Parkinsonism [Recovered/Resolved]
  - Swelling of eyelid [Recovered/Resolved]
  - Fall [Recovered/Resolved]

NARRATIVE: CASE EVENT DATE: 20200530
